FAERS Safety Report 7235529-4 (Version None)
Quarter: 2011Q1

REPORT INFORMATION
  Report Type: 
  Country: None (occurrence: None)
  Receive Date: 20110120
  Receipt Date: 20110110
  Transmission Date: 20110831
  Serious: Yes (Other)
  Sender: FDA-Public Use
  Company Number: PHHY2011BR02290

PATIENT
  Sex: Male

DRUGS (8)
  1. CYCLOSPORINE [Concomitant]
     Dosage: 25 MG, QD, 1 TABLET IN MORNING
  2. CELLCEPT [Concomitant]
     Indication: RENAL TRANSPLANT
     Dosage: 2 DF AT ONCE IN THE MORNING AND 1 TABLET AT NIGHT
     Route: 048
  3. GENTEAL GEL [Suspect]
     Indication: DRY EYE
     Route: 047
  4. CYCLOSPORINE [Concomitant]
     Indication: RENAL TRANSPLANT
     Dosage: 50 MG, BID
  5. GENTEAL [Suspect]
     Indication: DRY EYE
     Route: 047
  6. METICORTEN [Concomitant]
     Indication: RENAL TRANSPLANT
     Dosage: 2 DF ONCE IN THE MORNING
  7. CYCLOSPORINE [Concomitant]
     Dosage: 20 MG, QD, 1 TABLET AT NIGHT
  8. CONCOR [Concomitant]
     Indication: HYPERTENSION

REACTIONS (2)
  - DRUG INEFFECTIVE [None]
  - INSOMNIA [None]
